FAERS Safety Report 10699548 (Version 1)
Quarter: 2015Q1

REPORT INFORMATION
  Report Type: Spontaneous
  Country: US (occurrence: None)
  Receive Date: 20150108
  Receipt Date: 20150108
  Transmission Date: 20150721
  Serious: Yes (Hospitalization, Other)
  Sender: FDA-Public Use
  Company Number: None

PATIENT
  Age: 50 Year
  Sex: Female

DRUGS (1)
  1. KENALOG [Suspect]
     Active Substance: TRIAMCINOLONE ACETONIDE
     Dates: start: 20130405, end: 20130407

REACTIONS (6)
  - Condition aggravated [None]
  - Malaise [None]
  - Pancreatitis acute [None]
  - Product contamination [None]
  - Neck pain [None]
  - Activities of daily living impaired [None]

NARRATIVE: CASE EVENT DATE: 20130407
